FAERS Safety Report 21459381 (Version 3)
Quarter: 2022Q4

REPORT INFORMATION
  Report Type: Report from Study
  Country: CO (occurrence: CO)
  Receive Date: 20221014
  Receipt Date: 20221118
  Transmission Date: 20230113
  Serious: Yes (Other)
  Sender: FDA-Public Use
  Company Number: CO-JNJFOC-20220929159

PATIENT
  Age: 52 Year
  Sex: Female
  Weight: 61 kg

DRUGS (5)
  1. SIMPONI [Suspect]
     Active Substance: GOLIMUMAB
     Indication: Rheumatoid arthritis
     Dosage: 50.00 MG / 0.50 ML
     Route: 058
     Dates: start: 20220726
  2. PREDNISOLONE [Concomitant]
     Active Substance: PREDNISOLONE
  3. LEFLUNOMIDE [Concomitant]
     Active Substance: LEFLUNOMIDE
  4. ACETAMINOPHEN [Concomitant]
     Active Substance: ACETAMINOPHEN
  5. DEXAMETHASONE [Concomitant]
     Active Substance: DEXAMETHASONE

REACTIONS (14)
  - Rheumatoid arthritis [Not Recovered/Not Resolved]
  - Pain [Not Recovered/Not Resolved]
  - Insomnia [Not Recovered/Not Resolved]
  - Malaise [Not Recovered/Not Resolved]
  - Discoloured vomit [Not Recovered/Not Resolved]
  - Headache [Not Recovered/Not Resolved]
  - Motor dysfunction [Not Recovered/Not Resolved]
  - Swelling face [Not Recovered/Not Resolved]
  - Hypertension [Not Recovered/Not Resolved]
  - Gingival abscess [Not Recovered/Not Resolved]
  - Drug ineffective [Unknown]
  - Rhinitis [Unknown]
  - Bone pain [Unknown]
  - Lipoatrophy [Unknown]

NARRATIVE: CASE EVENT DATE: 20220101
